FAERS Safety Report 21767390 (Version 1)
Quarter: 2022Q4

REPORT INFORMATION
  Report Type: Spontaneous
  Country: US (occurrence: US)
  Receive Date: 20221222
  Receipt Date: 20221222
  Transmission Date: 20230112
  Serious: No
  Sender: FDA-Public Use
  Company Number: US-SA-SAC20221221000080

PATIENT
  Age: 12 Year
  Sex: Male

DRUGS (2)
  1. FABRAZYME [Suspect]
     Active Substance: AGALSIDASE BETA
     Indication: Fabry^s disease
     Dosage: 1 MG/KG, QOW
     Route: 041
     Dates: start: 2014
  2. FABRAZYME [Suspect]
     Active Substance: AGALSIDASE BETA
     Dosage: 1 MG/KG, QOW
     Route: 041
     Dates: start: 20221207

REACTIONS (3)
  - Urticaria [Recovered/Resolved]
  - Rash [Recovered/Resolved]
  - Breakthrough pain [Recovered/Resolved]

NARRATIVE: CASE EVENT DATE: 20221207
